FAERS Safety Report 6598031-9 (Version None)
Quarter: 2010Q1

REPORT INFORMATION
  Report Type: 
  Country: None (occurrence: None)
  Receive Date: 20100216
  Receipt Date: 20100129
  Transmission Date: 20100710
  Serious: Yes (Life-Threatening, Hospitalization)
  Sender: FDA-Public Use
  Company Number: DSA_42532_2010

PATIENT
  Age: 70 Year
  Sex: Female

DRUGS (16)
  1. ENALAPRIL MALEATE [Suspect]
     Indication: HYPERTENSION
     Dosage: 10 MG QD, ORAL
     Route: 048
     Dates: end: 20090802
  2. ENEAS (ENEAS-ENALAPRIL MALEATE + NITRENDIPINE) [Suspect]
     Indication: HYPERTENSION
     Dosage: 20-20 MG, DAILY, ORAL
     Route: 048
     Dates: end: 20090802
  3. TORSEMIDE [Suspect]
     Indication: HYPERTENSION
     Dosage: 10 MG, QD, ORAL
     Route: 048
     Dates: end: 20090804
  4. BISOPROLOL FUMARATE AND HYDROCHLOROTHIAZIDE [Suspect]
     Indication: HYPERTENSION
     Dosage: 5-12.5 MG, DAILY, ORAL
     Route: 048
     Dates: end: 20090802
  5. SPIRONOLACTONE [Suspect]
     Indication: HYPERTENSION
     Dosage: 25 MG, QD, ORAL
     Route: 048
     Dates: end: 20090802
  6. DOXAZOSIN MESYLATE [Suspect]
     Indication: DRUG USE FOR UNKNOWN INDICATION
     Dosage: 4 MG, QD, ORAL
     Route: 048
  7. DOXAZOSIN MESYLATE [Suspect]
     Indication: HYPERTENSION
     Dosage: 4 MG, QD, ORAL
     Route: 048
  8. VENLAFAXINE HYDROCHLORIDE [Suspect]
     Indication: DRUG USE FOR UNKNOWN INDICATION
     Dosage: 37.5 MG BID, ORAL
     Route: 048
     Dates: end: 20090803
  9. DICLOFENAC [Suspect]
     Indication: PAIN
     Dosage: 50 MG, QD, ORAL
     Route: 048
     Dates: end: 20090802
  10. ASPIRIN [Concomitant]
  11. DIGITOXIN INJ [Concomitant]
  12. LANTUS [Concomitant]
  13. ACTRAPID [Concomitant]
  14. XALATAN [Concomitant]
  15. METFORMIN HYDROCHLORIDE [Concomitant]
  16. NIASPAN [Concomitant]

REACTIONS (9)
  - ACUTE PRERENAL FAILURE [None]
  - BICYTOPENIA [None]
  - DEHYDRATION [None]
  - ERYTHROPENIA [None]
  - FLUID INTAKE REDUCED [None]
  - GASTROENTERITIS [None]
  - HYPERKALAEMIA [None]
  - HYPOPHAGIA [None]
  - THROMBOCYTOPENIA [None]
